FAERS Safety Report 12139355 (Version 1)
Quarter: 2016Q1

REPORT INFORMATION
  Report Type: Spontaneous
  Country: SI (occurrence: SI)
  Receive Date: 20160303
  Receipt Date: 20160303
  Transmission Date: 20160526
  Serious: Yes (Other)
  Sender: FDA-Public Use
  Company Number: SI-AMGEN-SVNSP2016023647

PATIENT
  Age: 72 Year
  Sex: Female
  Weight: 58 kg

DRUGS (7)
  1. ACETYLSALICYLIC ACID [Concomitant]
     Active Substance: ASPIRIN
     Dosage: 100 MG, UNK
  2. TRANDOLAPRIL. [Concomitant]
     Active Substance: TRANDOLAPRIL
     Dosage: 4 UNK, QD
  3. ARANESP [Suspect]
     Active Substance: DARBEPOETIN ALFA
     Indication: NEPHROGENIC ANAEMIA
     Dosage: 60 MUG, Q2WK
     Route: 058
  4. VERAPAMIL [Concomitant]
     Active Substance: VERAPAMIL HYDROCHLORIDE
     Dosage: 240 UNK, QD
  5. OMEPRAZOLE. [Concomitant]
     Active Substance: OMEPRAZOLE
     Dosage: 20 MG, QD
  6. SERTRALINE [Concomitant]
     Active Substance: SERTRALINE HYDROCHLORIDE
     Dosage: 100 MG, AND 50 MG IN EVENING
  7. BICARBONATE SODIUM [Concomitant]
     Dosage: 1 G, BID (1 G IN MORNING AND EVENING)

REACTIONS (17)
  - Renal hypertension [Unknown]
  - Proteinuria [Unknown]
  - Dizziness [Unknown]
  - Left ventricular hypertrophy [Unknown]
  - Nephroangiosclerosis [Unknown]
  - Depression [Unknown]
  - Abdominal pain [Unknown]
  - Kidney small [Unknown]
  - Urinary tract infection [Unknown]
  - Cardiomegaly [Unknown]
  - Walking aid user [Unknown]
  - Muscular weakness [Unknown]
  - Constipation [Unknown]
  - Diastolic dysfunction [Unknown]
  - Headache [Unknown]
  - Retinopathy hypertensive [Unknown]
  - Renal cyst [Unknown]
